FAERS Safety Report 17936095 (Version 1)
Quarter: 2020Q2

REPORT INFORMATION
  Report Type: Spontaneous
  Country: US (occurrence: US)
  Receive Date: 20200624
  Receipt Date: 20200624
  Transmission Date: 20200714
  Serious: Yes (Other)
  Sender: FDA-Public Use
  Company Number: None

PATIENT
  Age: 63 Year
  Sex: Male

DRUGS (2)
  1. ROSUVASTATIN 5 MG [Concomitant]
     Active Substance: ROSUVASTATIN
     Dates: start: 20200223, end: 20200624
  2. METFORMIN HYDROCHLORIDE. [Suspect]
     Active Substance: METFORMIN HYDROCHLORIDE
     Indication: DIABETES MELLITUS
     Route: 048
     Dates: start: 20200223, end: 20200308

REACTIONS (4)
  - Product substitution issue [None]
  - Hypoaesthesia oral [None]
  - Paraesthesia oral [None]
  - Tongue discomfort [None]

NARRATIVE: CASE EVENT DATE: 20200223
